FAERS Safety Report 5036860-3 (Version None)
Quarter: 2006Q2

REPORT INFORMATION
  Report Type: 
  Country: None (occurrence: None)
  Receive Date: 20060612
  Receipt Date: 20060123
  Transmission Date: 20061013
  Serious: Yes (Death)
  Sender: FDA-Public Use
  Company Number: 06P-163-0323260-00

PATIENT
  Sex: Male

DRUGS (1)
  1. MAVIK [Suspect]
     Dosage: 4 MG, 1 IN 1 D

REACTIONS (1)
  - DEATH [None]
